FAERS Safety Report 4910406-X (Version None)
Quarter: 2006Q1

REPORT INFORMATION
  Report Type: 
  Country: None (occurrence: None)
  Receive Date: 20060209
  Receipt Date: 20060127
  Transmission Date: 20060701
  Serious: Yes (Other)
  Sender: FDA-Public Use
  Company Number: 2006014331

PATIENT
  Age: 66 Year
  Sex: Male
  Weight: 74.8435 kg

DRUGS (5)
  1. LIPITOR [Suspect]
     Indication: BLOOD CHOLESTEROL INCREASED
     Dosage: 10 MG (10 MG, 1 IN 1 D), ORAL
     Route: 048
     Dates: start: 20040514
  2. LIPITOR [Suspect]
     Indication: LIPIDS INCREASED
     Dosage: 10 MG (10 MG, 1 IN 1 D), ORAL
     Route: 048
     Dates: start: 20040514
  3. ERYTHROMYCIN [Suspect]
     Indication: INFECTION PROPHYLAXIS
     Dosage: (6 IN 1 D), OPHTHALMIC
     Route: 047
     Dates: start: 20050901
  4. PLAVIX [Concomitant]
  5. REMERON [Concomitant]

REACTIONS (6)
  - ASTHENIA [None]
  - CORNEAL TRANSPLANT [None]
  - DRUG INTERACTION [None]
  - DYSPNOEA [None]
  - HEART RATE DECREASED [None]
  - HEART RATE IRREGULAR [None]
